FAERS Safety Report 24962020 (Version 1)
Quarter: 2025Q1

REPORT INFORMATION
  Report Type: Spontaneous
  Country: US (occurrence: US)
  Receive Date: 20250212
  Receipt Date: 20250212
  Transmission Date: 20250409
  Serious: Yes (Other)
  Sender: PFIZER
  Company Number: US-PFIZER INC-202500030343

PATIENT
  Age: 68 Year
  Sex: Female

DRUGS (3)
  1. TUKYSA [Suspect]
     Active Substance: TUCATINIB
     Dosage: 2 DF, 2X/DAY
  2. TUKYSA [Suspect]
     Active Substance: TUCATINIB
     Dosage: 300 MG, 2X/DAY
     Route: 048
  3. XELODA [Suspect]
     Active Substance: CAPECITABINE

REACTIONS (3)
  - Craniotomy [Unknown]
  - Off label use [Unknown]
  - Product use issue [Unknown]
